FAERS Safety Report 9963369 (Version 1)
Quarter: 2014Q1

REPORT INFORMATION
  Report Type: Report from Study
  Country: US (occurrence: US)
  Receive Date: 20140305
  Receipt Date: 20140305
  Transmission Date: 20141002
  Serious: No
  Sender: FDA-Public Use
  Company Number: US-ABBVIE-13P-163-1119470-00

PATIENT
  Age: 65 Year
  Sex: Female

DRUGS (10)
  1. HUMIRA [Suspect]
     Indication: RHEUMATOID ARTHRITIS
     Dates: start: 201210
  2. HUMIRA [Suspect]
     Dates: start: 201301
  3. OXYCODONE [Suspect]
     Indication: PAIN
  4. LOSARTAN [Concomitant]
     Indication: BLOOD PRESSURE
  5. GABAPENTIN [Concomitant]
     Indication: PRURITUS
  6. GABAPENTIN [Concomitant]
     Indication: HERPES ZOSTER
  7. LIDOCAINE [Concomitant]
     Indication: HERPES ZOSTER
     Dosage: PATCH
  8. BABY ASPIRIN [Concomitant]
     Indication: ISCHAEMIC HEART DISEASE PROPHYLAXIS
     Dosage: 1 DAILY
     Dates: start: 201301
  9. VITAMIN D [Concomitant]
     Indication: PRODUCT USED FOR UNKNOWN INDICATION
  10. COQ 10 ENZYME [Concomitant]
     Indication: PRODUCT USED FOR UNKNOWN INDICATION
     Dosage: 30 MG 3 TABLETS DAILY
     Dates: start: 201302

REACTIONS (6)
  - Epistaxis [Recovered/Resolved]
  - Constipation [Unknown]
  - Feeling abnormal [Unknown]
  - Injection site pain [Recovering/Resolving]
  - Pain [Unknown]
  - Hypertension [Unknown]
